FAERS Safety Report 20898369 (Version 2)
Quarter: 2022Q3

REPORT INFORMATION
  Report Type: Report from Study
  Country: AU (occurrence: AU)
  Receive Date: 20220531
  Receipt Date: 20220929
  Transmission Date: 20221026
  Serious: Yes (Other)
  Sender: FDA-Public Use
  Company Number: AU-SUN PHARMACEUTICAL INDUSTRIES LTD-2022RR-338607

PATIENT
  Age: 68 Year
  Sex: Male

DRUGS (4)
  1. CIPROFLOXACIN [Suspect]
     Active Substance: CIPROFLOXACIN
     Indication: Vascular graft infection
     Dosage: UNK
     Route: 065
  2. FLUCONAZOLE [Suspect]
     Active Substance: FLUCONAZOLE
     Indication: Vascular graft infection
     Dosage: UNK
     Route: 065
  3. COTRIMOXAZOLE [Suspect]
     Active Substance: SULFAMETHOXAZOLE\TRIMETHOPRIM
     Indication: Vascular graft infection
     Dosage: UNK
     Route: 065
  4. PRISTINAMYCIN [Suspect]
     Active Substance: PRISTINAMYCIN
     Indication: Vascular graft infection
     Dosage: UNK
     Route: 065

REACTIONS (2)
  - Liver injury [Unknown]
  - Acute kidney injury [Unknown]
